FAERS Safety Report 7223048-0 (Version None)
Quarter: 2011Q1

REPORT INFORMATION
  Report Type: 
  Country: None (occurrence: None)
  Receive Date: 20110112
  Receipt Date: 20110105
  Transmission Date: 20110831
  Serious: Yes (Hospitalization)
  Sender: FDA-Public Use
  Company Number: GB-MERCK-1101GBR00020

PATIENT
  Age: 33 Year
  Sex: Male

DRUGS (3)
  1. ALLOPURINOL [Suspect]
     Indication: HYPERURICAEMIA
     Route: 065
  2. LOSARTAN POTASSIUM [Suspect]
     Route: 048
  3. PRINIVIL [Suspect]
     Route: 048

REACTIONS (10)
  - DRUG RASH WITH EOSINOPHILIA AND SYSTEMIC SYMPTOMS [None]
  - TACHYCARDIA [None]
  - PYREXIA [None]
  - RASH MORBILLIFORM [None]
  - FATIGUE [None]
  - MALAISE [None]
  - HYPOTENSION [None]
  - PERIORBITAL OEDEMA [None]
  - HYPOVOLAEMIA [None]
  - OROPHARYNGEAL PAIN [None]
